FAERS Safety Report 4706942-1 (Version None)
Quarter: 2005Q3

REPORT INFORMATION
  Report Type: 
  Country: None (occurrence: None)
  Receive Date: 20050706
  Receipt Date: 20050620
  Transmission Date: 20060218
  Serious: Yes (Death, Hospitalization)
  Sender: FDA-Public Use
  Company Number: JP-BOEHRINGER INGELHEIM PHARMACEUTICALS, INC.-2005-BP-10422NB

PATIENT
  Sex: Female
  Weight: 53.4 kg

DRUGS (7)
  1. BI-SIFROL TABLETS [Suspect]
     Indication: PARKINSONISM
     Route: 048
     Dates: start: 20050512, end: 20050609
  2. TOLEDOMIN [Suspect]
     Indication: DEPRESSION
     Route: 048
     Dates: start: 20040804, end: 20050609
  3. AMOXAN [Suspect]
     Indication: DEPRESSION
     Route: 048
     Dates: start: 20050527, end: 20050609
  4. ROHYPNOL [Concomitant]
     Indication: DEPRESSION
     Route: 048
     Dates: start: 20040804, end: 20050609
  5. DEPAS [Concomitant]
     Indication: DEPRESSION
     Route: 048
     Dates: start: 20040804, end: 20050609
  6. SELBEX [Concomitant]
     Indication: DEPRESSION
     Route: 048
     Dates: start: 20040804, end: 20050609
  7. NELBON [Concomitant]
     Route: 048
     Dates: start: 20040804, end: 20050609

REACTIONS (3)
  - CARDIAC FAILURE [None]
  - INFECTION [None]
  - NEUROLEPTIC MALIGNANT SYNDROME [None]
